FAERS Safety Report 13712961 (Version 1)
Quarter: 2017Q3

REPORT INFORMATION
  Report Type: Spontaneous
  Country: GB (occurrence: GB)
  Receive Date: 20170704
  Receipt Date: 20170704
  Transmission Date: 20171127
  Serious: Yes (Congenital Anomaly, Other)
  Sender: FDA-Public Use
  Company Number: PHHY2017GB086028

PATIENT
  Sex: Male

DRUGS (2)
  1. VENLAFAXINE [Concomitant]
     Active Substance: VENLAFAXINE HYDROCHLORIDE
     Indication: FOETAL EXPOSURE DURING PREGNANCY
     Route: 064
  2. CARBAMAZEPINE. [Suspect]
     Active Substance: CARBAMAZEPINE
     Indication: FOETAL EXPOSURE DURING PREGNANCY
     Route: 064

REACTIONS (10)
  - Attention deficit/hyperactivity disorder [Not Recovered/Not Resolved]
  - Foetal exposure during pregnancy [Unknown]
  - Communication disorder [Unknown]
  - Impulsive behaviour [Unknown]
  - Congenital eye disorder [Unknown]
  - Autism spectrum disorder [Not Recovered/Not Resolved]
  - Learning disability [Unknown]
  - Anger [Unknown]
  - Disturbance in social behaviour [Unknown]
  - Foetal anticonvulsant syndrome [Not Recovered/Not Resolved]

NARRATIVE: CASE EVENT DATE: 2001
